FAERS Safety Report 22386916 (Version 2)
Quarter: 2025Q2

REPORT INFORMATION
  Report Type: Spontaneous
  Country: US (occurrence: US)
  Receive Date: 20230531
  Receipt Date: 20250605
  Transmission Date: 20250716
  Serious: Yes (Hospitalization)
  Sender: AUROBINDO
  Company Number: US-AUROBINDO-AUR-APL-2023-039307

PATIENT
  Age: 53 Year
  Sex: Male

DRUGS (3)
  1. PREDNISONE [Suspect]
     Active Substance: PREDNISONE
     Indication: Chronic graft versus host disease
     Route: 065
  2. SIROLIMUS [Suspect]
     Active Substance: SIROLIMUS
     Indication: Chronic graft versus host disease
     Route: 065
  3. BELUMOSUDIL [Suspect]
     Active Substance: BELUMOSUDIL
     Indication: Chronic graft versus host disease
     Route: 065

REACTIONS (1)
  - Drug ineffective [Unknown]
